FAERS Safety Report 15918777 (Version 4)
Quarter: 2019Q2

REPORT INFORMATION
  Report Type: Spontaneous
  Country: PT (occurrence: PT)
  Receive Date: 20190205
  Receipt Date: 20190521
  Transmission Date: 20190711
  Serious: Yes (Hospitalization, Other)
  Sender: FDA-Public Use
  Company Number: PT-MYLANLABS-2019M1009215

PATIENT
  Age: 14 Year
  Sex: Male

DRUGS (11)
  1. ALPRAZOLAM. [Suspect]
     Active Substance: ALPRAZOLAM
     Dosage: 0.5 MILLIGRAM, QD
  2. RISPERIDONE. [Suspect]
     Active Substance: RISPERIDONE
     Indication: OBSESSIVE-COMPULSIVE DISORDER
     Dosage: 0.5 MG/DAY
     Route: 065
     Dates: start: 201508
  3. RISPERIDONE. [Suspect]
     Active Substance: RISPERIDONE
     Dosage: TITRATION UP TO 0.5 MG/DAY
     Route: 065
     Dates: start: 201509
  4. ALPRAZOLAM. [Suspect]
     Active Substance: ALPRAZOLAM
     Indication: OBSESSIVE-COMPULSIVE DISORDER
     Dosage: 1 MG/DAY
     Route: 065
     Dates: start: 201506
  5. RISPERIDONE. [Suspect]
     Active Substance: RISPERIDONE
     Dosage: 0.5 MILLIGRAM, QD
     Route: 065
     Dates: start: 201509
  6. ALPRAZOLAM. [Suspect]
     Active Substance: ALPRAZOLAM
     Dosage: UNK UNK, QD
     Route: 065
     Dates: start: 201506
  7. RISPERIDONE. [Suspect]
     Active Substance: RISPERIDONE
     Dosage: 0.5 MILLIGRAM, DAILY, INCREASED DOSE
     Route: 065
     Dates: start: 201509
  8. FLUVOXAMINE [Suspect]
     Active Substance: FLUVOXAMINE
     Indication: OBSESSIVE-COMPULSIVE DISORDER
     Dosage: 125 MG/DAY
     Route: 065
     Dates: start: 201506
  9. ALPRAZOLAM. [Suspect]
     Active Substance: ALPRAZOLAM
     Dosage: 0.75 MG/DAY
     Route: 065
  10. FLUVOXAMINE [Suspect]
     Active Substance: FLUVOXAMINE
     Dosage: 150 MG/DAY
     Route: 065
  11. FLUVOXAMINE [Suspect]
     Active Substance: FLUVOXAMINE
     Dosage: 100 MG/DAY
     Route: 065

REACTIONS (12)
  - Weight decreased [Recovered/Resolved]
  - Cyclothymic disorder [Recovered/Resolved]
  - Dehydration [Recovered/Resolved]
  - Renal injury [Unknown]
  - Bradycardia [Recovered/Resolved]
  - Gastroenteritis [Recovered/Resolved]
  - Condition aggravated [Recovered/Resolved]
  - Acute kidney injury [Recovered/Resolved]
  - Off label use [Unknown]
  - Drug ineffective [Unknown]
  - Intentional product misuse [Unknown]
  - Therapeutic response decreased [Unknown]

NARRATIVE: CASE EVENT DATE: 201506
